FAERS Safety Report 9780776 (Version 2)
Quarter: 2013Q4

REPORT INFORMATION
  Report Type: Spontaneous
  Country: GB (occurrence: GB)
  Receive Date: 20131224
  Receipt Date: 20131224
  Transmission Date: 20140711
  Serious: Yes (Hospitalization, Other)
  Sender: FDA-Public Use
  Company Number: PHFR2010GB00558

PATIENT
  Age: 38 Year
  Sex: Male

DRUGS (5)
  1. CLOZARIL [Suspect]
     Indication: SCHIZOPHRENIA
     Dosage: UNK
     Route: 048
     Dates: start: 20031107, end: 20110415
  2. ACETYLSALICYLIC ACID [Concomitant]
     Dosage: 75 MG/DAY
     Route: 048
  3. METFORMIN [Concomitant]
     Dosage: 2 G/DAY
     Route: 048
  4. PERINDOPRIL [Concomitant]
     Dosage: 4 MG/DAY
  5. SIMVASTATIN [Concomitant]
     Dosage: 40 MG/DAY
     Route: 048

REACTIONS (3)
  - Diabetic coma [Unknown]
  - Diabetes mellitus [Unknown]
  - Glucose tolerance impaired [Unknown]
